FAERS Safety Report 8573169-5 (Version None)
Quarter: 2012Q2

REPORT INFORMATION
  Report Type: 
  Country: None (occurrence: None)
  Receive Date: 20120423
  Receipt Date: 20090917
  Transmission Date: 20120825
  Serious: Yes (Life-Threatening, Other)
  Sender: FDA-Public Use
  Company Number: PHEH2009US11121

PATIENT
  Age: 64 Year
  Sex: Male

DRUGS (2)
  1. EXJADE [Suspect]
     Indication: PROPHYLAXIS
     Dosage: 2000 MG, QD, ORAL
     Route: 048
     Dates: start: 20090410, end: 20090720
  2. EXJADE [Suspect]
     Indication: CARDIAC FAILURE CONGESTIVE
     Dosage: 2000 MG, QD, ORAL
     Route: 048
     Dates: start: 20090410, end: 20090720

REACTIONS (3)
  - TERMINAL STATE [None]
  - RENAL FAILURE [None]
  - BLOOD POTASSIUM INCREASED [None]
